FAERS Safety Report 21706534 (Version 1)
Quarter: 2022Q4

REPORT INFORMATION
  Report Type: Report from Study
  Country: US (occurrence: US)
  Receive Date: 20221209
  Receipt Date: 20221209
  Transmission Date: 20230112
  Serious: Yes (Other)
  Sender: FDA-Public Use
  Company Number: US-TAKEDA-2020TUS060297

PATIENT
  Sex: Female

DRUGS (2)
  1. VEDOLIZUMAB [Suspect]
     Active Substance: VEDOLIZUMAB
     Indication: Colitis ulcerative
     Dosage: 300 MILLIGRAM
     Route: 042
     Dates: start: 20201202
  2. VEDOLIZUMAB [Suspect]
     Active Substance: VEDOLIZUMAB
     Dosage: 300 MILLIGRAM, Q4WEEKS
     Route: 042

REACTIONS (10)
  - Disability [Unknown]
  - Sinus disorder [Unknown]
  - Dysphagia [Unknown]
  - Gait disturbance [Unknown]
  - Memory impairment [Unknown]
  - Panic attack [Unknown]
  - Fall [Unknown]
  - Speech disorder [Unknown]
  - Headache [Unknown]
  - Off label use [Unknown]
